FAERS Safety Report 8972789 (Version 5)
Quarter: 2013Q2

REPORT INFORMATION
  Report Type: Spontaneous
  Country: DE (occurrence: None)
  Receive Date: 20121207
  Receipt Date: 20130411
  Transmission Date: 20140414
  Serious: Yes (Hospitalization)
  Sender: FDA-Public Use
  Company Number: ACO_33109_2012

PATIENT
  Age: 61 Year
  Sex: Male

DRUGS (2)
  1. FAMPYRA [Suspect]
     Indication: MULTIPLE SCLEROSIS
     Route: 048
     Dates: start: 20121109, end: 20121110
  2. CIPRALEX [Concomitant]

REACTIONS (1)
  - Appendicitis [None]
